FAERS Safety Report 5922219-0 (Version None)
Quarter: 2008Q4

REPORT INFORMATION
  Report Type: 
  Country: None (occurrence: None)
  Receive Date: 20081015
  Receipt Date: 20081008
  Transmission Date: 20090506
  Serious: Yes (Other)
  Sender: FDA-Public Use
  Company Number: TPA2008A01570

PATIENT
  Age: 8 Decade
  Sex: Female

DRUGS (5)
  1. ACTOS [Suspect]
     Indication: TYPE 2 DIABETES MELLITUS
     Dosage: 45, PER ORAL
     Route: 048
  2. GLYBURIDE [Concomitant]
  3. JANUVIA (ALL OTHER THERAPEUTIC PRODUCTS) [Concomitant]
  4. ACTONEL [Concomitant]
  5. UNSPECIFIED ANIHYPERTENSIVE (ALL OTHER THERAPEUTIC PRODUCTS) [Concomitant]

REACTIONS (1)
  - BLADDER CANCER [None]
